FAERS Safety Report 13738370 (Version 1)
Quarter: 2017Q3

REPORT INFORMATION
  Report Type: Spontaneous
  Country: JP (occurrence: JP)
  Receive Date: 20170710
  Receipt Date: 20170710
  Transmission Date: 20171127
  Serious: Yes (Other)
  Sender: FDA-Public Use
  Company Number: JP-PFIZER INC-2017294640

PATIENT
  Age: 76 Year
  Sex: Male

DRUGS (4)
  1. DAIKENCHUTO [Concomitant]
     Active Substance: HERBALS
     Indication: GASTROINTESTINAL MOTILITY DISORDER
     Dosage: UNK
  2. MAGNESIUM OXIDE. [Concomitant]
     Active Substance: MAGNESIUM OXIDE
     Indication: GASTROINTESTINAL MOTILITY DISORDER
     Dosage: UNK
  3. LYRICA [Suspect]
     Active Substance: PREGABALIN
     Indication: PAIN
     Dosage: 25 MG, 1X/DAY BEFORE BEDTIME
     Route: 048
     Dates: start: 201704, end: 20170630
  4. LYRICA [Suspect]
     Active Substance: PREGABALIN
     Indication: SPINAL COMPRESSION FRACTURE

REACTIONS (1)
  - Enterocolitis [Not Recovered/Not Resolved]

NARRATIVE: CASE EVENT DATE: 201704
